FAERS Safety Report 23256942 (Version 1)
Quarter: 2023Q4

REPORT INFORMATION
  Report Type: Spontaneous
  Country: NL (occurrence: None)
  Receive Date: 20231204
  Receipt Date: 20231204
  Transmission Date: 20240110
  Serious: Yes (Hospitalization)
  Sender: FDA-Public Use
  Company Number: None

PATIENT
  Age: 51 Year
  Sex: Female
  Weight: 103 kg

DRUGS (5)
  1. BEVACIZUMAB [Suspect]
     Active Substance: BEVACIZUMAB
     Indication: Macular degeneration
     Dosage: 1.25 MG (/1 INJECTIE VAN 0,05 ML) 1 KEER PER 4 WEK
     Route: 065
     Dates: start: 20010101
  2. BISACODYL [Concomitant]
     Active Substance: BISACODYL
     Dosage: MAAGSAPRESISTENTE TABLET, 5 MG (MILLIGRAM)
  3. INSULIN GLARGINE [Concomitant]
     Active Substance: INSULIN GLARGINE
     Dosage: INJECTIEVLOEISTOF, 100 EENHEDEN/ML (EENHEDEN PER MILLILITER)
  4. LEVOTHYROXINE [Concomitant]
     Active Substance: LEVOTHYROXINE
     Dosage: TABLET, 125 (MICROGRAM)
  5. INSULIN ASPART [Concomitant]
     Active Substance: INSULIN ASPART
     Dosage: INFUSIEVLOEISTOF, 1 EENHEDEN/ML (EENHEDEN PER MILLILITER)

REACTIONS (1)
  - Renal impairment [Recovering/Resolving]
